FAERS Safety Report 9748659 (Version 2)
Quarter: 2014Q3

REPORT INFORMATION
  Report Type: Report from Study
  Country: JP (occurrence: JP)
  Receive Date: 20131212
  Receipt Date: 20140731
  Transmission Date: 20150326
  Serious: Yes (Other)
  Sender: FDA-Public Use
  Company Number: JP-ASTELLAS-2013JP013585

PATIENT
  Age: 40 Year
  Sex: Female

DRUGS (12)
  1. LEDERCORT                          /00031901/ [Concomitant]
     Route: 048
     Dates: start: 20100626
  2. GASTER [Concomitant]
     Active Substance: FAMOTIDINE
     Indication: PROPHYLAXIS
     Route: 048
  3. LEDERCORT                          /00031901/ [Concomitant]
     Indication: LUPUS NEPHRITIS
     Route: 048
     Dates: end: 20090902
  4. TACROLIMUS. [Suspect]
     Active Substance: TACROLIMUS
     Route: 048
     Dates: start: 20090903
  5. TACROLIMUS. [Suspect]
     Active Substance: TACROLIMUS
     Indication: LUPUS NEPHRITIS
     Route: 048
     Dates: start: 20090807, end: 20090902
  6. LEDERCORT                          /00031901/ [Concomitant]
     Dosage: ??
     Route: 048
     Dates: start: 20100206, end: 20100625
  7. EDIROL [Concomitant]
     Active Substance: ELDECALCITOL
     Indication: PROPHYLAXIS
     Dosage: 0.75 MG, ONCE DAILY
     Route: 048
     Dates: start: 20120615
  8. ACECOL [Concomitant]
     Active Substance: TEMOCAPRIL HYDROCHLORIDE
     Indication: LUPUS NEPHRITIS
     Route: 048
  9. ALFAROL [Concomitant]
     Active Substance: ALFACALCIDOL
     Indication: PROPHYLAXIS
     Route: 048
     Dates: end: 20120614
  10. LEDERCORT                          /00031901/ [Concomitant]
     Route: 048
     Dates: start: 20090903, end: 20100205
  11. NORVASC [Concomitant]
     Active Substance: AMLODIPINE BESYLATE
     Indication: PRODUCT USED FOR UNKNOWN INDICATION
     Route: 048
  12. GLAKAY [Concomitant]
     Indication: PROPHYLAXIS
     Route: 048

REACTIONS (2)
  - Renal disorder [Recovering/Resolving]
  - Hypercalcaemia [Recovering/Resolving]

NARRATIVE: CASE EVENT DATE: 20130705
